FAERS Safety Report 10885502 (Version 2)
Quarter: 2015Q1

REPORT INFORMATION
  Report Type: Spontaneous
  Country: None (occurrence: US)
  Receive Date: 20150304
  Receipt Date: 20150325
  Transmission Date: 20150721
  Serious: No
  Sender: FDA-Public Use
  Company Number: US-EISAI MEDICAL RESEARCH-EC-2015-004347

PATIENT
  Age: 43 Year
  Sex: Female
  Weight: 99.3 kg

DRUGS (1)
  1. BELVIQ [Suspect]
     Active Substance: LORCASERIN HYDROCHLORIDE
     Indication: WEIGHT INCREASED
     Route: 048
     Dates: start: 20141208, end: 20150203

REACTIONS (9)
  - Joint swelling [Unknown]
  - Fatigue [Recovered/Resolved]
  - Constipation [Recovered/Resolved]
  - Restlessness [Recovered/Resolved]
  - Weight increased [Recovered/Resolved]
  - Abdominal distension [Unknown]
  - Heart rate increased [Recovered/Resolved]
  - Breast engorgement [Recovered/Resolved]
  - Blood pressure increased [Recovered/Resolved]

NARRATIVE: CASE EVENT DATE: 201412
